FAERS Safety Report 23919505 (Version 1)
Quarter: 2024Q2

REPORT INFORMATION
  Report Type: Spontaneous
  Country: GT (occurrence: GT)
  Receive Date: 20240530
  Receipt Date: 20240530
  Transmission Date: 20240716
  Serious: Yes (Disabling, Other)
  Sender: FDA-Public Use
  Company Number: GT-002147023-NVSC2024GT111783

PATIENT
  Age: 74 Year
  Sex: Female

DRUGS (2)
  1. HYDROCHLOROTHIAZIDE\VALSARTAN [Suspect]
     Active Substance: HYDROCHLOROTHIAZIDE\VALSARTAN
     Indication: Hypertension
     Dosage: 320/25 MG (ORAL BY MOUTH)
     Route: 048
  2. EXFORGE HCT [Suspect]
     Active Substance: AMLODIPINE BESYLATE\HYDROCHLOROTHIAZIDE\VALSARTAN
     Indication: Hypertension
     Dosage: 10/320/25 MG (HALF A TABLET IN THE MORNING AND AT NIGHT)
     Route: 048
     Dates: start: 202308

REACTIONS (8)
  - Oedema [Not Recovered/Not Resolved]
  - Movement disorder [Unknown]
  - Peripheral swelling [Unknown]
  - Inflammation [Unknown]
  - Fatigue [Unknown]
  - Limb discomfort [Unknown]
  - Off label use [Not Recovered/Not Resolved]
  - Therapy non-responder [Unknown]

NARRATIVE: CASE EVENT DATE: 20231101
